FAERS Safety Report 10922807 (Version 2)
Quarter: 2015Q2

REPORT INFORMATION
  Report Type: Other
  Country: IT (occurrence: IT)
  Receive Date: 20150317
  Receipt Date: 20150423
  Transmission Date: 20150821
  Serious: Yes (Hospitalization)
  Sender: FDA-Public Use
  Company Number: IT-MYLANLABS-2015M1007183

PATIENT

DRUGS (1)
  1. OLANZAPINE. [Suspect]
     Active Substance: OLANZAPINE
     Indication: PRODUCT USED FOR UNKNOWN INDICATION
     Dosage: 10 MG TOTAL
     Route: 048
     Dates: start: 20141127, end: 20141127

REACTIONS (7)
  - Accidental exposure to product [Unknown]
  - Sopor [Recovered/Resolved]
  - Sinus tachycardia [Recovered/Resolved]
  - Crying [Recovered/Resolved]
  - Irritability [Recovered/Resolved]
  - Agitation [Recovered/Resolved]
  - Toxicity to various agents [Unknown]

NARRATIVE: CASE EVENT DATE: 20141127
